FAERS Safety Report 5776921-4 (Version None)
Quarter: 2008Q2

REPORT INFORMATION
  Report Type: 
  Country: None (occurrence: None)
  Receive Date: 20080618
  Receipt Date: 20080208
  Transmission Date: 20081010
  Serious: Yes (Other)
  Sender: FDA-Public Use
  Company Number: B0514168A

PATIENT
  Age: 3 Year
  Sex: Female

DRUGS (1)
  1. ZENTEL [Suspect]
     Indication: INFECTION PARASITIC
     Dosage: 30ML SINGLE DOSE
     Route: 048
     Dates: start: 20080112, end: 20080112

REACTIONS (6)
  - DIARRHOEA [None]
  - FAECES DISCOLOURED [None]
  - FAECES PALE [None]
  - GASTROENTERITIS [None]
  - PYREXIA [None]
  - VOMITING [None]
